FAERS Safety Report 7949834-7 (Version None)
Quarter: 2011Q4

REPORT INFORMATION
  Report Type: 
  Country: None (occurrence: None)
  Receive Date: 20111123
  Receipt Date: 20111110
  Transmission Date: 20120403
  Serious: Yes (Death, Hospitalization, Other)
  Sender: FDA-Public Use
  Company Number: 2011MA016341

PATIENT
  Age: 67 Year
  Sex: Male
  Weight: 113.3993 kg

DRUGS (35)
  1. AMITRIPTYLINE HCL [Concomitant]
  2. AMPICILLIN [Concomitant]
  3. DOXAZOSIN MESYLATE [Concomitant]
  4. METOLAZONE [Concomitant]
  5. SENNA [Concomitant]
  6. KAYEXALATE [Concomitant]
  7. METOPROLOL TARTRATE [Concomitant]
  8. DOXYCYCLINE [Concomitant]
  9. HUMULIN R [Concomitant]
  10. LEVAQUIN [Concomitant]
  11. ALLOPURINOL [Concomitant]
  12. GABAPENTIN [Concomitant]
  13. LYRICA [Concomitant]
  14. ADVAIR DISKUS 100/50 [Concomitant]
  15. HYDROCODONE BITARTRATE AND ACETAMINOPHEN [Concomitant]
  16. LANTUS [Concomitant]
  17. PREDNISONE TAB [Concomitant]
  18. PREVACID [Concomitant]
  19. SPIRIVA [Concomitant]
  20. TAZTIA XT [Concomitant]
  21. TERAZOSIN HCL [Concomitant]
  22. TRIAMCINOLONE ACETONIDE [Concomitant]
  23. DIGOXIN [Suspect]
     Indication: CARDIAC FAILURE
     Dosage: 0.125 MG;QD;PO
     Route: 048
     Dates: start: 20040401, end: 20070701
  24. CALCIUM [Concomitant]
  25. CEPHALEXIN [Concomitant]
  26. DILTIAZEM HCL [Concomitant]
  27. QUININE SULFATE [Concomitant]
  28. CLONIDINE [Concomitant]
  29. LISINOPRIL [Concomitant]
  30. RIFAMPIN [Concomitant]
  31. WARFARIN SODIUM [Concomitant]
  32. AMOK/ K CLAV [Concomitant]
  33. FOSAMAX [Concomitant]
  34. FUROSEMIDE [Concomitant]
  35. ZAROXOLYN [Concomitant]

REACTIONS (14)
  - ANXIETY [None]
  - OSTEOMYELITIS [None]
  - DIABETES MELLITUS [None]
  - COR PULMONALE [None]
  - RENAL FAILURE [None]
  - ECONOMIC PROBLEM [None]
  - CARDIAC DISORDER [None]
  - ACUTE RESPIRATORY FAILURE [None]
  - PNEUMONIA [None]
  - ATRIAL FIBRILLATION [None]
  - HYPERTENSION [None]
  - INJURY [None]
  - STAPHYLOCOCCAL INFECTION [None]
  - CHRONIC OBSTRUCTIVE PULMONARY DISEASE [None]
